FAERS Safety Report 20379241 (Version 1)
Quarter: 2022Q1

REPORT INFORMATION
  Report Type: Spontaneous
  Country: US (occurrence: US)
  Receive Date: 20220126
  Receipt Date: 20220126
  Transmission Date: 20220423
  Serious: Yes (Other)
  Sender: FDA-Public Use
  Company Number: US-HQ SPECIALTY-US-2022INT000033

PATIENT

DRUGS (4)
  1. CISPLATIN [Suspect]
     Active Substance: CISPLATIN
     Indication: Bladder cancer
     Dosage: 70 MG/M2 (EITHER ONCE ON DAY 1 OR SPLIT DOSE ON DAYS 1 AND 8), EVERY 21 DAYS FOR 4 CYCLES
     Route: 065
  2. PEMBROLIZUMAB [Suspect]
     Active Substance: PEMBROLIZUMAB
     Indication: Bladder cancer
     Dosage: 200 MG (ONCE ON DAY 1), EVERY 21 DAYS FOR 4 CYCLES
     Route: 042
  3. GEMCITABINE [Suspect]
     Active Substance: GEMCITABINE
     Indication: Bladder cancer
     Dosage: 1000 MG/M2 ONCE ON DAY 1 AND 8, EVERY 21 DAYS FOR 4 CYCLES
  4. DEXAMETHASONE [Concomitant]
     Active Substance: DEXAMETHASONE
     Indication: Product used for unknown indication
     Dosage: 8 MG (BEFORE CISPLATIN ON DAYS 1 AND 8, OPTION TO CONTINUE ON DAYS 2, 3, 9, 10

REACTIONS (1)
  - Myelodysplastic syndrome [Unknown]
